FAERS Safety Report 13423412 (Version 1)
Quarter: 2017Q2

REPORT INFORMATION
  Report Type: Report from Study
  Country: US (occurrence: US)
  Receive Date: 20170410
  Receipt Date: 20170410
  Transmission Date: 20170830
  Serious: Yes (Hospitalization)
  Sender: FDA-Public Use
  Company Number: US-JNJFOC-20161218019

PATIENT
  Age: 62 Year
  Sex: Male

DRUGS (1)
  1. IMBRUVICA [Suspect]
     Active Substance: IBRUTINIB
     Indication: NON-HODGKIN^S LYMPHOMA
     Route: 048
     Dates: start: 20160324

REACTIONS (4)
  - Mental status changes [Unknown]
  - Osteomyelitis [Recovered/Resolved]
  - Rash [Recovered/Resolved]
  - Meningitis bacterial [Unknown]

NARRATIVE: CASE EVENT DATE: 20161208
